FAERS Safety Report 7170465-3 (Version None)
Quarter: 2010Q4

REPORT INFORMATION
  Report Type: 
  Country: None (occurrence: None)
  Receive Date: 20101217
  Receipt Date: 20101216
  Transmission Date: 20110411
  Serious: Yes (Hospitalization)
  Sender: FDA-Public Use
  Company Number: FR-ROCHE-748529

PATIENT
  Age: 53 Year
  Sex: Female

DRUGS (15)
  1. ROCEPHIN [Suspect]
     Dosage: FREQUENCY: SINGLE INTAKE
     Route: 030
     Dates: start: 20101023, end: 20101023
  2. ABUFENE [Concomitant]
  3. KENZEN [Concomitant]
  4. SEROPLEX [Concomitant]
  5. MOLSIDOMINE [Concomitant]
     Dosage: DRUG REPORTED AS : MOLSIDONINE
  6. SINGULAIR [Concomitant]
  7. OXEOL [Concomitant]
  8. VIT B1 [Concomitant]
  9. VIT B6 [Concomitant]
  10. LECTIL [Concomitant]
  11. SERESTA [Concomitant]
     Dosage: DRUG REPORTED AS SERESTA 50
  12. SERETIDE [Concomitant]
     Dosage: DRUG REPORTED AS SERETIDE 500
  13. SPIRIVA [Concomitant]
  14. INNOVAIR [Concomitant]
  15. CRESTOR [Concomitant]

REACTIONS (1)
  - ANGIOEDEMA [None]
